FAERS Safety Report 24337821 (Version 1)
Quarter: 2024Q3

REPORT INFORMATION
  Report Type: Spontaneous
  Country: FR (occurrence: FR)
  Receive Date: 20240919
  Receipt Date: 20240919
  Transmission Date: 20241017
  Serious: Yes (Hospitalization)
  Sender: BRISTOL MYERS SQUIBB
  Company Number: FR-BRISTOL-MYERS SQUIBB COMPANY-2024-148417

PATIENT
  Age: 85 Year
  Sex: Female

DRUGS (1)
  1. OPDIVO [Suspect]
     Active Substance: NIVOLUMAB
     Indication: Pleural mesothelioma malignant
     Dosage: FREQ : EVERY 2 WEEKS FOR A TOTAL OF 3 INJECTIONS?ROUTE OF ADMINISTRATION : INJECTION

REACTIONS (2)
  - Confusional state [Not Recovered/Not Resolved]
  - Off label use [Unknown]
